FAERS Safety Report 7647093-6 (Version None)
Quarter: 2011Q3

REPORT INFORMATION
  Report Type: 
  Country: None (occurrence: None)
  Receive Date: 20110801
  Receipt Date: 20110726
  Transmission Date: 20111222
  Serious: Yes (Death, Life-Threatening, Hospitalization)
  Sender: FDA-Public Use
  Company Number: US-ROCHE-662414

PATIENT
  Sex: Male
  Weight: 85.3 kg

DRUGS (11)
  1. ALIMTA [Suspect]
     Indication: NON-SMALL CELL LUNG CANCER
     Dosage: 500 MG/M2, Q21D
     Route: 042
     Dates: start: 20090904, end: 20090904
  2. DURAGESIC-100 [Concomitant]
     Dosage: UNK
     Dates: start: 20090904
  3. FLUCONAZOLE [Concomitant]
     Dates: start: 20090901, end: 20090907
  4. VITAMIN B-12 [Concomitant]
     Dates: start: 20090824, end: 20090911
  5. NEXIUM [Concomitant]
  6. BEVACIZUMAB [Suspect]
     Indication: NON-SMALL CELL LUNG CANCER
     Dosage: 15 MG/M2, Q21D
     Route: 042
     Dates: start: 20090904, end: 20090904
  7. NORCO [Concomitant]
     Dosage: UNK
     Dates: start: 20090731
  8. MEGESTROL ACETATE [Concomitant]
     Dosage: UNK
     Dates: start: 20090822
  9. FOLIC ACID [Concomitant]
     Dates: start: 20090824, end: 20090911
  10. CARBOPLATIN [Suspect]
     Indication: NON-SMALL CELL LUNG CANCER
     Dosage: 6 DF, Q21D
     Route: 042
     Dates: start: 20090904, end: 20090904
  11. DEXAMETHASONE [Concomitant]
     Dates: start: 20090824, end: 20090911

REACTIONS (8)
  - RESPIRATORY FAILURE [None]
  - INFECTIOUS PERITONITIS [None]
  - LEUKOPENIA [None]
  - THROMBOCYTOPENIA [None]
  - HEPATIC FUNCTION ABNORMAL [None]
  - RENAL FAILURE ACUTE [None]
  - LARGE INTESTINE PERFORATION [None]
  - SEPSIS [None]
